FAERS Safety Report 8437308-9 (Version None)
Quarter: 2012Q2

REPORT INFORMATION
  Report Type: 
  Country: None (occurrence: None)
  Receive Date: 20120614
  Receipt Date: 20120305
  Transmission Date: 20120825
  Serious: No
  Sender: FDA-Public Use
  Company Number: US-AMGEN-USASP2011040385

PATIENT
  Sex: Female
  Weight: 80.272 kg

DRUGS (1)
  1. PROLIA [Suspect]
     Indication: OSTEOPOROSIS POSTMENOPAUSAL
     Dosage: 60 MG, ONE TIME DOSE
     Route: 058
     Dates: start: 20110505, end: 20110505

REACTIONS (5)
  - BONE PAIN [None]
  - OPEN WOUND [None]
  - PAIN [None]
  - RASH [None]
  - PAIN IN EXTREMITY [None]
